FAERS Safety Report 6955095-8 (Version None)
Quarter: 2010Q3

REPORT INFORMATION
  Report Type: 
  Country: None (occurrence: None)
  Receive Date: 20100830
  Receipt Date: 20100824
  Transmission Date: 20110219
  Serious: Yes (Other)
  Sender: FDA-Public Use
  Company Number: NL-ASTRAZENECA-2010SE14663

PATIENT
  Sex: Male

DRUGS (1)
  1. PROPOFOL [Suspect]
     Indication: INDUCTION OF ANAESTHESIA
     Dosage: 100 ML VIAL USED FOR SEVERAL PATIENTS.
     Route: 042

REACTIONS (15)
  - DRUG ADMINISTRATION ERROR [None]
  - HAEMORRHAGE [None]
  - KLEBSIELLA TEST POSITIVE [None]
  - LEUKOPENIA [None]
  - MULTI-ORGAN FAILURE [None]
  - POST PROCEDURAL SEPSIS [None]
  - POSTOPERATIVE FEVER [None]
  - PROCEDURAL HYPOTENSION [None]
  - PRODUCT CONTAMINATION MICROBIAL [None]
  - RENAL IMPAIRMENT [None]
  - SEPSIS [None]
  - SERRATIA TEST POSITIVE [None]
  - SURGICAL PROCEDURE REPEATED [None]
  - THROMBOCYTOPENIA [None]
  - WRONG TECHNIQUE IN DRUG USAGE PROCESS [None]
